FAERS Safety Report 8553079-X (Version None)
Quarter: 2012Q3

REPORT INFORMATION
  Report Type: 
  Country: None (occurrence: None)
  Receive Date: 20120731
  Receipt Date: 20120719
  Transmission Date: 20120928
  Serious: Yes (Hospitalization)
  Sender: FDA-Public Use
  Company Number: CA-SANOFI-AVENTIS-2012SA051678

PATIENT
  Age: 61 Year
  Sex: Male
  Weight: 82 kg

DRUGS (3)
  1. LOVENOX [Suspect]
     Route: 058
  2. WARFARIN SODIUM [Concomitant]
  3. LEVAQUIN [Concomitant]

REACTIONS (5)
  - INJECTION SITE VESICLES [None]
  - HYPERSENSITIVITY [None]
  - INJECTION SITE URTICARIA [None]
  - INJECTION SITE ERYTHEMA [None]
  - INJECTION SITE CELLULITIS [None]
